FAERS Safety Report 6847805-5 (Version None)
Quarter: 2010Q3

REPORT INFORMATION
  Report Type: 
  Country: None (occurrence: None)
  Receive Date: 20100714
  Receipt Date: 20100628
  Transmission Date: 20110219
  Serious: Yes (Hospitalization)
  Sender: FDA-Public Use
  Company Number: UTC-001215

PATIENT
  Age: 59 Year
  Sex: Female
  Weight: 102 kg

DRUGS (17)
  1. TYVASO [Suspect]
     Indication: THROMBOSIS
     Dosage: 216 MCG, 1 D, INHALATION
     Route: 055
     Dates: start: 20100514
  2. ALBUTEROL [Concomitant]
     Indication: PULMONARY ARTERIAL HYPERTENSION
  3. NEURONTIN [Concomitant]
  4. SINGULAIR [Concomitant]
  5. OXYCODONE + APAP (OXYCOCET) [Concomitant]
  6. COUMADIN [Concomitant]
  7. ZYRTEC [Concomitant]
  8. FUROSEMIDE [Concomitant]
  9. METOLAZONE [Concomitant]
  10. SPIRONOLACTONE [Concomitant]
  11. MAGNESIUM (MAGNESIUM) [Concomitant]
  12. REQUIP [Concomitant]
  13. CLONAZEPAM [Concomitant]
  14. NASONEX [Concomitant]
  15. NORTRIPTYLINE HCL [Concomitant]
  16. XALATAN [Concomitant]
  17. NITRO-DUR [Concomitant]

REACTIONS (1)
  - CARBON DIOXIDE INCREASED [None]
